FAERS Safety Report 19116339 (Version 1)
Quarter: 2021Q2

REPORT INFORMATION
  Report Type: Spontaneous
  Country: IN (occurrence: IN)
  Receive Date: 20210409
  Receipt Date: 20210409
  Transmission Date: 20210717
  Serious: Yes (Life-Threatening, Hospitalization, Other)
  Sender: FDA-Public Use
  Company Number: IN-VALIDUS PHARMACEUTICALS LLC-IN-2021VAL000750

PATIENT
  Weight: 2.6 kg

DRUGS (4)
  1. FUROSEMIDE. [Suspect]
     Active Substance: FUROSEMIDE
     Indication: CARDIAC FAILURE HIGH OUTPUT
     Dosage: 1 MG/KG, BID
     Route: 065
  2. ISOPRENALINE [Suspect]
     Active Substance: ISOPROTERENOL HYDROCHLORIDE
     Indication: CARDIAC FAILURE HIGH OUTPUT
     Dosage: 0.05 UG/KG, QMN
  3. MILRINONE [Suspect]
     Active Substance: MILRINONE
     Indication: CARDIAC FAILURE HIGH OUTPUT
     Dosage: 0.5 UG/KG, QMN
     Route: 065
  4. PROSTAGLANDIN E1 [Suspect]
     Active Substance: ALPROSTADIL
     Indication: CARDIAC FAILURE HIGH OUTPUT
     Dosage: 0.05 UG/KG, QMN
     Route: 065

REACTIONS (1)
  - Drug ineffective [Unknown]
